FAERS Safety Report 4364949-0 (Version None)
Quarter: 2004Q2

REPORT INFORMATION
  Report Type: 
  Country: None (occurrence: None)
  Receive Date: 20040521
  Receipt Date: 20040513
  Transmission Date: 20050107
  Serious: Yes (Other)
  Sender: FDA-Public Use
  Company Number: 2004030266

PATIENT
  Age: 71 Year
  Sex: Male
  Weight: 99.7913 kg

DRUGS (2)
  1. LIPITOR [Suspect]
     Indication: BLOOD CHOLESTEROL INCREASED
     Dosage: 10 MG (10 MG 1 IN 1 D) ORAL
     Route: 048
     Dates: start: 20020101
  2. LEVOTHYROXINE SODIUM [Concomitant]

REACTIONS (3)
  - BLINDNESS [None]
  - BLOOD TRIGLYCERIDES INCREASED [None]
  - EYE HAEMORRHAGE [None]
